FAERS Safety Report 9448401 (Version 1)
Quarter: 2013Q3

REPORT INFORMATION
  Report Type: Spontaneous
  Country: IT (occurrence: IT)
  Receive Date: 20130808
  Receipt Date: 20130808
  Transmission Date: 20140515
  Serious: Yes (Other)
  Sender: FDA-Public Use
  Company Number: IT-PFIZER INC-2013223382

PATIENT
  Age: 42 Year
  Sex: Female

DRUGS (3)
  1. TRIATEC [Suspect]
     Indication: HYPERTENSION
     Dosage: 1 TABLET OF 5 MG DAILY
     Route: 048
     Dates: start: 20130101, end: 20130304
  2. TRIATEC HCT [Suspect]
     Indication: HYPERTENSION
     Dosage: 1 DOSE FORM DAILY
     Route: 048
     Dates: start: 20130101, end: 20130304
  3. LERCADIP [Concomitant]
     Dosage: UNK

REACTIONS (2)
  - Drug ineffective [Recovering/Resolving]
  - Hypertensive crisis [Recovering/Resolving]
